FAERS Safety Report 7424241-4 (Version None)
Quarter: 2011Q2

REPORT INFORMATION
  Report Type: 
  Country: None (occurrence: None)
  Receive Date: 20110419
  Receipt Date: 20110406
  Transmission Date: 20111010
  Serious: Yes (Death, Hospitalization)
  Sender: FDA-Public Use
  Company Number: A0921849A

PATIENT
  Age: 41 Year
  Sex: Male
  Weight: 72.6 kg

DRUGS (3)
  1. LORAZEPAM [Concomitant]
  2. OFATUMUMAB [Suspect]
     Indication: B-CELL LYMPHOMA
     Dosage: 1000MG WEEKLY
     Route: 042
     Dates: start: 20110131, end: 20110221
  3. DILAUDID [Concomitant]

REACTIONS (4)
  - SEPSIS [None]
  - BACTERAEMIA [None]
  - HYPERCALCAEMIA [None]
  - DISEASE PROGRESSION [None]
